FAERS Safety Report 9289006 (Version 2)
Quarter: 2013Q2

REPORT INFORMATION
  Report Type: Spontaneous
  Country: JP (occurrence: JP)
  Receive Date: 20130514
  Receipt Date: 20130523
  Transmission Date: 20140414
  Serious: Yes (Other)
  Sender: FDA-Public Use
  Company Number: JP-OTSUKA-JP-2013-11433

PATIENT
  Age: 57 Year
  Sex: Female

DRUGS (2)
  1. PLETAAL [Suspect]
     Indication: CEREBRAL INFARCTION
     Dosage: 100 MG MILLIGRAM(S), DAILY DOSE
     Route: 048
  2. ANTIHYPERTENSIVES [Concomitant]
     Dosage: UNK
     Route: 065

REACTIONS (1)
  - Aneurysm [Unknown]
